FAERS Safety Report 16389087 (Version 1)
Quarter: 2019Q2

REPORT INFORMATION
  Report Type: Spontaneous
  Country: MY (occurrence: MY)
  Receive Date: 20190604
  Receipt Date: 20190604
  Transmission Date: 20190711
  Serious: Yes (Death, Other)
  Sender: FDA-Public Use
  Company Number: MY-PFIZER INC-2019235197

PATIENT
  Age: 3 Year
  Sex: Male

DRUGS (1)
  1. VFEND [Suspect]
     Active Substance: VORICONAZOLE
     Indication: FUNGAEMIA
     Dosage: 50 MG, UNK

REACTIONS (4)
  - Jaundice cholestatic [Unknown]
  - Hepatic failure [Fatal]
  - Sepsis [Fatal]
  - Wrong technique in product usage process [Unknown]
